FAERS Safety Report 13896594 (Version 1)
Quarter: 2017Q3

REPORT INFORMATION
  Report Type: Spontaneous
  Country: US (occurrence: US)
  Receive Date: 20170821
  Receipt Date: 20170821
  Transmission Date: 20171127
  Serious: Yes (Disabling, Other)
  Sender: FDA-Public Use
  Company Number: None

PATIENT
  Age: 73 Year
  Sex: Male
  Weight: 128.25 kg

DRUGS (23)
  1. ASPRIN [Concomitant]
     Active Substance: ASPIRIN
  2. QUINIAPINE FUMERATE [Concomitant]
  3. VITAMIN D [Concomitant]
     Active Substance: CHOLECALCIFEROL
  4. MORPHINE [Concomitant]
     Active Substance: MORPHINE
  5. NITROGLYCERIN. [Concomitant]
     Active Substance: NITROGLYCERIN
  6. VITAMIN C [Concomitant]
     Active Substance: ASCORBIC ACID
  7. MAGNESIUM [Concomitant]
     Active Substance: MAGNESIUM
  8. CLONAZEPAM. [Concomitant]
     Active Substance: CLONAZEPAM
  9. KETACONAZOLE SHAMPOO [Concomitant]
  10. HEMP OIL [Concomitant]
     Active Substance: CANNABIS SATIVA SEED OIL
  11. CARBAMAZAPINE ER-SUBSTITUTED FOR CARBATROL- CAPSULES 100MG- S433 [Suspect]
     Active Substance: CARBAMAZEPINE
     Indication: BIPOLAR DISORDER
     Dosage: ?          QUANTITY:60 CAPSULE(S);?
     Route: 048
     Dates: start: 20170703, end: 20170821
  12. FINASTERIDE. [Concomitant]
     Active Substance: FINASTERIDE
  13. ALFUOSIN [Concomitant]
  14. TRIAMCINOLONE ACETONIDE. [Concomitant]
     Active Substance: TRIAMCINOLONE ACETONIDE
  15. FISH OIL [Concomitant]
     Active Substance: FISH OIL
  16. POTTASIUM CHLORIDE ER [Concomitant]
  17. CORYDALIS YANHUSUO RHIZOME [Concomitant]
     Active Substance: HERBALS
  18. DIOSMIN/HESPERIDIN [Concomitant]
  19. FUROSEMIDE. [Concomitant]
     Active Substance: FUROSEMIDE
  20. METFORMIN [Concomitant]
     Active Substance: METFORMIN HYDROCHLORIDE
  21. CYANOCOBALAMIN. [Concomitant]
     Active Substance: CYANOCOBALAMIN
  22. ALBUTEROL SULFATE HFA [Concomitant]
     Active Substance: ALBUTEROL SULFATE
  23. LISINOPRIL. [Concomitant]
     Active Substance: LISINOPRIL

REACTIONS (5)
  - Rash [None]
  - Furuncle [None]
  - Pain [None]
  - Stevens-Johnson syndrome [None]
  - Blister [None]

NARRATIVE: CASE EVENT DATE: 20170813
